FAERS Safety Report 10045970 (Version 1)
Quarter: 2014Q1

REPORT INFORMATION
  Report Type: Spontaneous
  Country: US (occurrence: US)
  Receive Date: 20140330
  Receipt Date: 20140330
  Transmission Date: 20141002
  Serious: No
  Sender: FDA-Public Use
  Company Number: US-009507513-1403USA011788

PATIENT
  Age: 46 Year
  Sex: Male

DRUGS (9)
  1. DULERA [Suspect]
     Indication: ASTHMA
     Dosage: 100 MICROGRAM 2 PUFFS, BID
     Route: 055
     Dates: start: 201401, end: 20140317
  2. PRAVASTATIN SODIUM [Concomitant]
  3. VICODIN [Concomitant]
  4. EXFORGE [Concomitant]
  5. ASARONE [Concomitant]
  6. METOPROLOL [Concomitant]
  7. KLOR-CON [Concomitant]
  8. FUROSEMIDE [Concomitant]
  9. WARFARIN [Concomitant]

REACTIONS (4)
  - Agitation [Recovered/Resolved]
  - Abnormal dreams [Recovered/Resolved]
  - Sleep talking [Recovered/Resolved]
  - Nightmare [Recovered/Resolved]
